FAERS Safety Report 21485111 (Version 1)
Quarter: 2022Q4

REPORT INFORMATION
  Report Type: Spontaneous
  Country: US (occurrence: None)
  Receive Date: 20221019
  Receipt Date: 20221019
  Transmission Date: 20230113
  Serious: Yes (Other)
  Sender: FDA-Public Use
  Company Number: None

PATIENT
  Age: 66 Year
  Sex: Male
  Weight: 105.75 kg

DRUGS (7)
  1. MAGNESIUM CITRATE [Suspect]
     Active Substance: MAGNESIUM CITRATE
     Indication: Constipation
     Dosage: OTHER QUANTITY : 10 OUNCE(S);?FREQUENCY : DAILY;?
     Route: 048
     Dates: start: 20221008, end: 20221008
  2. MULTAQ [Concomitant]
  3. LIPITOR [Concomitant]
     Active Substance: ATORVASTATIN CALCIUM
  4. PLAVIX [Concomitant]
     Active Substance: CLOPIDOGREL BISULFATE
  5. norvast [Concomitant]
  6. VITAMINS [Concomitant]
     Active Substance: VITAMINS
  7. PROTONIX [Concomitant]
     Active Substance: PANTOPRAZOLE SODIUM

REACTIONS (3)
  - Diverticulitis [None]
  - Pancreatitis [None]
  - Inflammation [None]

NARRATIVE: CASE EVENT DATE: 20221008
